FAERS Safety Report 4980300-7 (Version None)
Quarter: 2006Q2

REPORT INFORMATION
  Report Type: 
  Country: None (occurrence: None)
  Receive Date: 20060424
  Receipt Date: 19990204
  Transmission Date: 20061013
  Serious: No
  Sender: FDA-Public Use
  Company Number: JP-ABBOTT-99P-087-0081376-00

PATIENT
  Age: 41 Year
  Sex: Male

DRUGS (9)
  1. NORVIR [Suspect]
     Indication: HIV INFECTION
     Route: 048
     Dates: start: 19980403, end: 19980813
  2. NORVIR [Suspect]
     Route: 048
     Dates: start: 20000701, end: 20010702
  3. KALETRA [Suspect]
     Indication: HIV INFECTION
     Route: 048
     Dates: start: 20030108
  4. NELFINAVIR MESILATE [Suspect]
     Indication: HIV INFECTION
     Route: 048
     Dates: start: 19980813
  5. STAVUDINE [Suspect]
     Indication: HIV INFECTION
     Route: 048
     Dates: start: 19980403
  6. DIDANOSINE [Suspect]
     Indication: HIV INFECTION
     Route: 048
     Dates: start: 19980403
  7. EFAVIRENZ [Suspect]
     Indication: HIV INFECTION
     Dates: start: 20030108
  8. EFAVIRENZ [Suspect]
     Dates: start: 20020401, end: 20021113
  9. BACTRIM [Concomitant]
     Indication: ANTIBIOTIC PROPHYLAXIS
     Route: 048
     Dates: start: 19980413

REACTIONS (4)
  - CONDITION AGGRAVATED [None]
  - DIABETES MELLITUS [None]
  - HERPES ZOSTER [None]
  - HYPERLIPIDAEMIA [None]
